FAERS Safety Report 16663597 (Version 2)
Quarter: 2021Q1

REPORT INFORMATION
  Report Type: Spontaneous
  Country: JP (occurrence: JP)
  Receive Date: 20190802
  Receipt Date: 20210322
  Transmission Date: 20210419
  Serious: Yes (Other)
  Sender: FDA-Public Use
  Company Number: JP-JNJFOC-20190627708

PATIENT
  Age: 74 Year

DRUGS (7)
  1. MONTELUKAST [Concomitant]
     Active Substance: MONTELUKAST SODIUM
     Indication: PROPHYLAXIS
     Dosage: DOSE UNKNOWN
     Route: 048
     Dates: start: 20190205
  2. DEXAMETHASONE. [Suspect]
     Active Substance: DEXAMETHASONE
     Indication: PLASMA CELL MYELOMA
     Route: 065
     Dates: start: 20190205
  3. CALONAL [Concomitant]
     Active Substance: ACETAMINOPHEN
     Indication: PROPHYLAXIS
     Dosage: DOSE UNKNOWN
     Route: 065
     Dates: start: 20190205
  4. DARZALEX [Suspect]
     Active Substance: DARATUMUMAB
     Indication: PLASMA CELL MYELOMA
     Dosage: DOSE UNKNOWN
     Route: 041
     Dates: start: 20190205, end: 2019
  5. DEXAMETHASONE. [Suspect]
     Active Substance: DEXAMETHASONE
     Indication: PROPHYLAXIS
     Dosage: DOSE UNKNOWN
     Route: 065
     Dates: start: 20190205
  6. VELCADE [Suspect]
     Active Substance: BORTEZOMIB
     Indication: PLASMA CELL MYELOMA
     Route: 065
     Dates: start: 20190205
  7. NEORESTAR [Concomitant]
     Active Substance: CHLORPHENIRAMINE MALEATE
     Indication: PROPHYLAXIS
     Dosage: DOSE UNKNOWN
     Route: 065
     Dates: start: 20190205

REACTIONS (6)
  - Leukopenia [Unknown]
  - Neutropenia [Unknown]
  - Lymphopenia [Unknown]
  - Cerebral infarction [Unknown]
  - Thrombocytopenia [Unknown]
  - Anaemia [Unknown]
